FAERS Safety Report 22168259 (Version 1)
Quarter: 2023Q2

REPORT INFORMATION
  Report Type: Spontaneous
  Country: TR (occurrence: None)
  Receive Date: 20230403
  Receipt Date: 20230403
  Transmission Date: 20230721
  Serious: Yes (Life-Threatening, Hospitalization)
  Sender: FDA-Public Use
  Company Number: 2023A076442

PATIENT
  Age: 16 Year
  Sex: Female

DRUGS (3)
  1. DAPAGLIFLOZIN [Suspect]
     Active Substance: DAPAGLIFLOZIN
     Route: 048
  2. AMLODIPINE [Suspect]
     Active Substance: AMLODIPINE BESYLATE
  3. PERINDOPRIL [Suspect]
     Active Substance: PERINDOPRIL

REACTIONS (5)
  - Suicide attempt [Unknown]
  - Hypotension [Unknown]
  - Tachypnoea [Unknown]
  - Pulmonary oedema [Unknown]
  - Renal impairment [Unknown]
